FAERS Safety Report 9968794 (Version 1)
Quarter: 2014Q1

REPORT INFORMATION
  Report Type: Report from Study
  Country: US (occurrence: US)
  Receive Date: 20140306
  Receipt Date: 20140306
  Transmission Date: 20141002
  Serious: No
  Sender: FDA-Public Use
  Company Number: US-ABBVIE-13P-163-1142762-00

PATIENT
  Age: 39 Year
  Sex: Female

DRUGS (3)
  1. HUMIRA [Suspect]
     Indication: COLITIS ULCERATIVE
     Dates: start: 201210
  2. ALAVERT D [Concomitant]
     Indication: HYPERSENSITIVITY
  3. DILTIAZEM [Concomitant]
     Indication: ANAL FISSURE

REACTIONS (8)
  - Anal fissure [Unknown]
  - Injection site pain [Not Recovered/Not Resolved]
  - Screaming [Not Recovered/Not Resolved]
  - Crohn^s disease [Recovered/Resolved]
  - Injection site reaction [Unknown]
  - Injection site bruising [Unknown]
  - Wrong technique in drug usage process [Unknown]
  - Incorrect dose administered [Unknown]
